FAERS Safety Report 8575494-0 (Version None)
Quarter: 2012Q3

REPORT INFORMATION
  Report Type: 
  Country: None (occurrence: None)
  Receive Date: 20120807
  Receipt Date: 20120801
  Transmission Date: 20120928
  Serious: Yes (Hospitalization, Other)
  Sender: FDA-Public Use
  Company Number: ES-ELI_LILLY_AND_COMPANY-ES201204003578

PATIENT
  Sex: Female
  Weight: 73 kg

DRUGS (15)
  1. CAFINITRINA [Concomitant]
     Indication: CARDIAC DISORDER
     Dosage: UNK, PRN
     Route: 048
  2. NITROGLYCERIN [Concomitant]
     Dosage: 10 MG, QD
     Route: 062
  3. BIMATOPROST AND TIMOLOL MALEATE [Concomitant]
     Dosage: 300 MG, QD
     Route: 047
  4. CALCIUM CARBONATE [Concomitant]
     Indication: OSTEOPOROSIS
     Dosage: UNK, QD
     Route: 048
  5. CARDIL                             /00489702/ [Concomitant]
     Dosage: 40 MG, QD
     Route: 048
  6. FORTEO [Suspect]
     Indication: OSTEOPOROSIS
     Dosage: 20 UG, QD
     Route: 058
     Dates: start: 20110627, end: 20120321
  7. ATORVASTATINA                      /01326102/ [Concomitant]
     Dosage: 40 MG, QD
     Route: 048
  8. CLOPIDOGREL [Concomitant]
     Dosage: 75 MG, QD
     Route: 048
  9. PLANTAGO AFRA [Concomitant]
     Dosage: UNK, QD
     Route: 048
  10. ALMAX [Concomitant]
     Indication: GASTROINTESTINAL DISORDER THERAPY
     Dosage: UNK, PRN
     Route: 048
  11. ASPIRIN [Concomitant]
     Indication: MYOCARDIAL ISCHAEMIA
     Dosage: 1 DF, QD
     Route: 048
  12. OMEPRAZOLE [Concomitant]
     Dosage: 20 MG, QD
     Route: 048
  13. ACETAMINOPHEN [Concomitant]
     Dosage: UNK, QD
     Route: 048
  14. BISOPROLOL NORMON [Concomitant]
     Dosage: UNK, QD
     Route: 048
  15. LOSARTAN NORMON [Concomitant]
     Dosage: 25 MG, QD
     Route: 048

REACTIONS (5)
  - DIZZINESS [None]
  - CHOLELITHIASIS [None]
  - NEPHROLITHIASIS [None]
  - CARDIAC DISORDER [None]
  - LOSS OF CONSCIOUSNESS [None]
